FAERS Safety Report 13905639 (Version 1)
Quarter: 2017Q3

REPORT INFORMATION
  Report Type: Spontaneous
  Country: US (occurrence: None)
  Receive Date: 20170821
  Receipt Date: 20170821
  Transmission Date: 20171127
  Serious: No
  Sender: FDA-Public Use
  Company Number: None

PATIENT
  Age: 66 Year
  Sex: Female

DRUGS (14)
  1. FUROSEMIDE. [Concomitant]
     Active Substance: FUROSEMIDE
  2. NIACIN. [Concomitant]
     Active Substance: NIACIN
  3. AMITRIPTYLINE [Concomitant]
     Active Substance: AMITRIPTYLINE
  4. FLONASE [Concomitant]
     Active Substance: FLUTICASONE PROPIONATE
  5. METFORMIN [Concomitant]
     Active Substance: METFORMIN HYDROCHLORIDE
  6. VITAMIN B12 [Concomitant]
     Active Substance: CYANOCOBALAMIN
  7. EPCLUSA [Suspect]
     Active Substance: SOFOSBUVIR\VELPATASVIR
  8. PREDNISONE. [Concomitant]
     Active Substance: PREDNISONE
  9. DICLOFENAC [Concomitant]
     Active Substance: DICLOFENAC
  10. LOSARTAN. [Concomitant]
     Active Substance: LOSARTAN
  11. ATORVASTATIN [Concomitant]
     Active Substance: ATORVASTATIN
  12. KCL [Concomitant]
     Active Substance: POTASSIUM CHLORIDE
  13. MONTELUKAST [Concomitant]
     Active Substance: MONTELUKAST SODIUM
  14. ASA [Concomitant]
     Active Substance: ASPIRIN

REACTIONS (2)
  - Hyperhidrosis [None]
  - Chromaturia [None]

NARRATIVE: CASE EVENT DATE: 20170821
